FAERS Safety Report 6495351-3 (Version None)
Quarter: 2009Q4

REPORT INFORMATION
  Report Type: 
  Country: None (occurrence: None)
  Receive Date: 20091209
  Receipt Date: 20091203
  Transmission Date: 20100525
  Serious: Yes (Other)
  Sender: FDA-Public Use
  Company Number: 446586

PATIENT
  Age: 51 Year
  Sex: Male

DRUGS (1)
  1. METHOTREXATE [Suspect]
     Indication: DERMATITIS PSORIASIFORM
     Dosage: 15 MG, 1 WEEK ; 20 MG, 1 WEEK
     Dates: start: 20070501

REACTIONS (1)
  - PEYRONIE'S DISEASE [None]
